FAERS Safety Report 13878166 (Version 1)
Quarter: 2017Q3

REPORT INFORMATION
  Report Type: Spontaneous
  Country: FR (occurrence: FR)
  Receive Date: 20170817
  Receipt Date: 20170817
  Transmission Date: 20171127
  Serious: Yes (Hospitalization)
  Sender: FDA-Public Use
  Company Number: FR-INDIVIOR LIMITED-INDV-103862-2017

PATIENT
  Sex: Male

DRUGS (1)
  1. SUBUTEX [Suspect]
     Active Substance: BUPRENORPHINE HYDROCHLORIDE
     Indication: PRODUCT USED FOR UNKNOWN INDICATION
     Dosage: UNK
     Route: 042

REACTIONS (8)
  - Hypotension [Recovered/Resolved]
  - Bacterial sepsis [Recovered/Resolved]
  - Dermo-hypodermitis [Recovered/Resolved]
  - Hyperthermia [Recovered/Resolved]
  - Injection site abscess [Recovered/Resolved]
  - Intentional product use issue [Unknown]
  - Deep vein thrombosis [Recovered/Resolved]
  - Somnolence [Recovered/Resolved]
